FAERS Safety Report 13443985 (Version 1)
Quarter: 2017Q2

REPORT INFORMATION
  Report Type: Spontaneous
  Country: GB (occurrence: GB)
  Receive Date: 20170414
  Receipt Date: 20170414
  Transmission Date: 20170830
  Serious: Yes (Other)
  Sender: FDA-Public Use
  Company Number: GB-TEVA-757759ACC

PATIENT
  Age: 56 Year
  Sex: Female
  Weight: 57.6 kg

DRUGS (6)
  1. ZOLMITRIPTAN. [Concomitant]
     Active Substance: ZOLMITRIPTAN
  2. IMIGRAN [Concomitant]
     Active Substance: SUMATRIPTAN SUCCINATE
  3. FROVATRIPTAN. [Concomitant]
     Active Substance: FROVATRIPTAN
  4. ACTAVIS GROUP PTC TOPIRAMATE [Suspect]
     Active Substance: TOPIRAMATE
     Indication: MIGRAINE PROPHYLAXIS
     Dosage: 25 MILLIGRAM DAILY; AT NIGHT.
     Route: 048
     Dates: start: 20170210, end: 20170222
  5. ASPIRINE [Concomitant]
     Active Substance: ASPIRIN
  6. ESTRADIOL HEMIHYDRATE [Concomitant]
     Active Substance: ESTRADIOL HEMIHYDRATE

REACTIONS (4)
  - Malaise [Recovered/Resolved with Sequelae]
  - Rash papular [Recovered/Resolved with Sequelae]
  - Pruritus [Recovered/Resolved]
  - Generalised erythema [Recovered/Resolved with Sequelae]

NARRATIVE: CASE EVENT DATE: 20170221
